FAERS Safety Report 25857150 (Version 1)
Quarter: 2025Q3

REPORT INFORMATION
  Report Type: Spontaneous
  Country: EU (occurrence: EU)
  Receive Date: 20250929
  Receipt Date: 20250929
  Transmission Date: 20251021
  Serious: Yes (Hospitalization, Other)
  Sender: REGENERON
  Company Number: EU-BAYER-2025A125604

PATIENT
  Sex: Female

DRUGS (3)
  1. EYLEA [Suspect]
     Active Substance: AFLIBERCEPT
     Indication: Age-related macular degeneration
     Route: 031
     Dates: start: 20250214, end: 20250214
  2. EYLEA [Suspect]
     Active Substance: AFLIBERCEPT
     Route: 031
     Dates: start: 20250418, end: 20250418
  3. EYLEA [Suspect]
     Active Substance: AFLIBERCEPT
     Route: 031
     Dates: start: 20250711, end: 20250711

REACTIONS (7)
  - Blindness [Unknown]
  - Vision blurred [Unknown]
  - Endophthalmitis [Recovering/Resolving]
  - Hypopyon [Unknown]
  - Visual acuity reduced [Not Recovered/Not Resolved]
  - Eye inflammation [Unknown]
  - Eye pain [Unknown]

NARRATIVE: CASE EVENT DATE: 20250713
